FAERS Safety Report 10682776 (Version 2)
Quarter: 2015Q1

REPORT INFORMATION
  Report Type: Spontaneous
  Country: US (occurrence: US)
  Receive Date: 20141230
  Receipt Date: 20150212
  Transmission Date: 20150720
  Serious: No
  Sender: FDA-Public Use
  Company Number: US-TEVA-531843USA

PATIENT
  Age: 32 Year
  Sex: Female
  Weight: 97.16 kg

DRUGS (3)
  1. PARAGARD T 380A [Suspect]
     Active Substance: COPPER
     Route: 015
  2. PARAGARD T 380A [Suspect]
     Active Substance: COPPER
     Indication: CONTRACEPTION
     Route: 015
     Dates: start: 20141210, end: 20141218
  3. THYROID 3 [Concomitant]
     Indication: HYPOTHYROIDISM

REACTIONS (2)
  - Discomfort [Recovered/Resolved]
  - Device expulsion [Recovered/Resolved]

NARRATIVE: CASE EVENT DATE: 20141217
